FAERS Safety Report 7672531 (Version 6)
Quarter: 2018Q3

REPORT INFORMATION
  Report Type: Report from Study
  Country: JP (occurrence: JP)
  Receive Date: 20101117
  Receipt Date: 20180906
  Transmission Date: 20181010
  Serious: Yes (Hospitalization, Other)
  Sender: FDA-Public Use
  Company Number: PHHY2010JP75145

PATIENT
  Age: 66 Year
  Sex: Male

DRUGS (19)
  1. TASIGNA [Suspect]
     Active Substance: NILOTINIB
     Route: 048
     Dates: start: 20101015, end: 20101103
  2. BEPRICOR [Concomitant]
     Active Substance: BEPRIDIL
     Dosage: 100 MG
     Route: 048
  3. TASIGNA [Suspect]
     Active Substance: NILOTINIB
     Route: 048
     Dates: start: 20110224, end: 20110324
  4. TASIGNA [Suspect]
     Active Substance: NILOTINIB
     Dosage: 150 MG, QD
     Route: 048
     Dates: start: 20110525, end: 20110623
  5. BEPRICOR [Concomitant]
     Active Substance: BEPRIDIL
     Dosage: 100 MG
     Route: 048
  6. TASIGNA [Suspect]
     Active Substance: NILOTINIB
     Dosage: 150 MG, ONCE IN 7 DAYS
     Route: 048
     Dates: start: 20120712, end: 20120926
  7. BEPRICOR [Concomitant]
     Active Substance: BEPRIDIL
     Dosage: 100 MG
     Route: 048
  8. TASIGNA [Suspect]
     Active Substance: NILOTINIB
     Indication: CHRONIC MYELOID LEUKAEMIA
     Dosage: 150 MG, FOUR TIMES IN SEVEN DAYS
     Route: 048
     Dates: start: 20110811, end: 20110916
  9. TASIGNA [Suspect]
     Active Substance: NILOTINIB
     Dosage: 400 MG, BID
     Route: 048
     Dates: start: 20100511, end: 20100607
  10. TASIGNA [Suspect]
     Active Substance: NILOTINIB
     Route: 048
     Dates: start: 20100726, end: 20100903
  11. NU?LOTAN [Concomitant]
     Active Substance: LOSARTAN POTASSIUM
     Indication: HYPERTENSION
     Dosage: 25 MG
     Route: 048
     Dates: start: 20100511
  12. BEPRICOR [Concomitant]
     Active Substance: BEPRIDIL
     Indication: ARRHYTHMIA
     Dosage: 100 MG
     Route: 048
     Dates: start: 20100511
  13. TASIGNA [Suspect]
     Active Substance: NILOTINIB
     Route: 048
     Dates: start: 20101216, end: 20110120
  14. TASIGNA [Suspect]
     Active Substance: NILOTINIB
     Dosage: 150 MG, ONCE IN 14 DAYS
     Route: 048
     Dates: start: 20120323, end: 20120419
  15. NU?LOTAN [Concomitant]
     Active Substance: LOSARTAN POTASSIUM
     Dosage: 25 MG
     Route: 048
     Dates: end: 20101103
  16. TASIGNA [Suspect]
     Active Substance: NILOTINIB
     Dosage: 150 MG, TWO TIMES IN SEVEN DAYS
     Route: 048
     Dates: start: 20121102, end: 20121110
  17. TASIGNA [Suspect]
     Active Substance: NILOTINIB
     Dosage: 150 MG, ONCE IN SEVEN DAYS
     Route: 048
     Dates: start: 20120113, end: 20120308
  18. TASIGNA [Suspect]
     Active Substance: NILOTINIB
     Dosage: 150 MG, ONCE IN 10 DAYS
     Route: 048
     Dates: start: 20120420, end: 20120711
  19. TASIGNA [Suspect]
     Active Substance: NILOTINIB
     Dosage: 150 MG, ONCE IN 5 DAYS
     Route: 048
     Dates: start: 20120927, end: 20130113

REACTIONS (14)
  - Cerebral infarction [Recovered/Resolved with Sequelae]
  - Electrocardiogram QT prolonged [Not Recovered/Not Resolved]
  - White blood cell count decreased [Recovered/Resolved]
  - Drug eruption [Recovered/Resolved]
  - Lacunar infarction [Recovered/Resolved]
  - Cerebral infarction [Recovered/Resolved]
  - Lacunar infarction [Recovered/Resolved]
  - Neutrophil count decreased [Recovering/Resolving]
  - Dyslalia [Unknown]
  - White blood cell count decreased [Recovered/Resolved]
  - Platelet count decreased [Recovering/Resolving]
  - Anaemia [Recovering/Resolving]
  - Neutrophil count decreased [Recovered/Resolved]
  - Herpes zoster [Recovered/Resolved]

NARRATIVE: CASE EVENT DATE: 20100520
